FAERS Safety Report 21334544 (Version 2)
Quarter: 2022Q3

REPORT INFORMATION
  Report Type: Spontaneous
  Country: US (occurrence: US)
  Receive Date: 20220914
  Receipt Date: 20220927
  Transmission Date: 20221026
  Serious: No
  Sender: FDA-Public Use
  Company Number: US-Covis Pharma Europe B.V.-2022COV02708

PATIENT
  Age: 72 Year
  Sex: Female

DRUGS (2)
  1. TUDORZA PRESSAIR [Suspect]
     Active Substance: ACLIDINIUM BROMIDE
     Indication: Chronic obstructive pulmonary disease
     Dosage: 1 PUFF 2X DAILY
  2. TUDORZA PRESSAIR [Suspect]
     Active Substance: ACLIDINIUM BROMIDE
     Indication: Bronchiectasis

REACTIONS (4)
  - Dyspnoea [Not Recovered/Not Resolved]
  - Cough [Not Recovered/Not Resolved]
  - Aphonia [Not Recovered/Not Resolved]
  - Product dose omission issue [Not Recovered/Not Resolved]

NARRATIVE: CASE EVENT DATE: 20220907
